FAERS Safety Report 6408382-6 (Version None)
Quarter: 2009Q4

REPORT INFORMATION
  Report Type: 
  Country: None (occurrence: None)
  Receive Date: 20091021
  Receipt Date: 20091015
  Transmission Date: 20100525
  Serious: Yes (Hospitalization)
  Sender: FDA-Public Use
  Company Number: SE-ASTRAZENECA-2009SE20241

PATIENT
  Age: 70 Year
  Sex: Male

DRUGS (5)
  1. SELOKEN ZOC [Suspect]
     Route: 048
     Dates: end: 20090901
  2. OMEPRAZOLE [Suspect]
     Route: 048
     Dates: end: 20090901
  3. ISOSORBIDMONONITRAT MYLAN [Suspect]
     Route: 048
     Dates: end: 20090901
  4. BETAPRED [Concomitant]
     Route: 065
  5. TROMBYL [Concomitant]
     Route: 065

REACTIONS (2)
  - HYPONATRAEMIA [None]
  - HYPOTENSION [None]
